FAERS Safety Report 6381286-3 (Version None)
Quarter: 2009Q3

REPORT INFORMATION
  Report Type: 
  Country: None (occurrence: None)
  Receive Date: 20090929
  Receipt Date: 20090920
  Transmission Date: 20100115
  Serious: Yes (Hospitalization)
  Sender: FDA-Public Use
  Company Number: US-AMGEN-QUU365570

PATIENT
  Sex: Female

DRUGS (2)
  1. ENBREL [Suspect]
     Indication: PSORIATIC ARTHROPATHY
     Route: 058
     Dates: start: 20021224
  2. ENBREL [Suspect]
     Indication: PSORIASIS

REACTIONS (6)
  - CYSTITIS [None]
  - GASTROINTESTINAL INFECTION [None]
  - NAUSEA [None]
  - OVARIAN CYST [None]
  - PSORIASIS [None]
  - STAPHYLOCOCCAL INFECTION [None]
